FAERS Safety Report 17911673 (Version 1)
Quarter: 2020Q2

REPORT INFORMATION
  Report Type: Spontaneous
  Country: US (occurrence: US)
  Receive Date: 20200618
  Receipt Date: 20200618
  Transmission Date: 20200714
  Serious: No
  Sender: FDA-Public Use
  Company Number: US-PFIZER INC-2020200731

PATIENT
  Sex: Male

DRUGS (5)
  1. LYRICA [Suspect]
     Active Substance: PREGABALIN
     Indication: PAIN
  2. LYRICA [Suspect]
     Active Substance: PREGABALIN
     Indication: GAIT DISTURBANCE
  3. SKELAXIN [Concomitant]
     Active Substance: METAXALONE
     Indication: NEURALGIA
  4. SKELAXIN [Concomitant]
     Active Substance: METAXALONE
     Indication: PAIN
     Dosage: UNK
  5. LYRICA [Suspect]
     Active Substance: PREGABALIN
     Indication: PAIN
     Dosage: DAY [TAKE 1 CAPSULE (300 MG TOTAL) BY MOUTH 2 (TWO) TIMES DAILY]
     Route: 048
     Dates: end: 202002

REACTIONS (1)
  - Herpes zoster [Recovered/Resolved]
